FAERS Safety Report 5123149-7 (Version None)
Quarter: 2006Q4

REPORT INFORMATION
  Report Type: 
  Country: None (occurrence: None)
  Receive Date: 20061005
  Receipt Date: 20060921
  Transmission Date: 20070319
  Serious: Yes (Hospitalization)
  Sender: FDA-Public Use
  Company Number: 2006015697

PATIENT
  Age: 57 Year
  Sex: Female
  Weight: 77.6 kg

DRUGS (9)
  1. SUTENT [Suspect]
     Indication: METASTATIC RENAL CELL CARCINOMA
     Dosage: 50 MG (50 MG, 1 IN 1 D), ORAL
     Route: 048
     Dates: start: 20060112, end: 20060120
  2. CARDIZEM [Concomitant]
  3. ACETAMINOPHEN [Concomitant]
  4. SYNTHROID [Concomitant]
  5. NEXIUM [Concomitant]
  6. ASPIRIN [Concomitant]
  7. ATIVAN [Concomitant]
  8. MULTIVITAMIN [Concomitant]
  9. ZOFRAN [Concomitant]

REACTIONS (6)
  - BLOOD CREATININE INCREASED [None]
  - CONDITION AGGRAVATED [None]
  - FATIGUE [None]
  - HYPERTENSION [None]
  - THROMBOTIC MICROANGIOPATHY [None]
  - THROMBOTIC THROMBOCYTOPENIC PURPURA [None]
